FAERS Safety Report 16461870 (Version 1)
Quarter: 2019Q2

REPORT INFORMATION
  Report Type: Spontaneous
  Country: US (occurrence: US)
  Receive Date: 20190510
  Receipt Date: 20190510
  Transmission Date: 20190711
  Serious: Yes (Hospitalization)
  Sender: FDA-Public Use
  Company Number: None

PATIENT
  Age: 42 Year
  Sex: Male

DRUGS (10)
  1. STELARA [Suspect]
     Active Substance: USTEKINUMAB
     Indication: PSORIASIS
     Dosage: ?          OTHER FREQUENCY:EVERY 12 WEEKS;?
     Route: 058
     Dates: start: 20181218
  2. DICYCLOMINE [Concomitant]
     Active Substance: DICYCLOMINE HYDROCHLORIDE
  3. METHOCARBAM [Concomitant]
     Active Substance: METHOCARBAMOL
  4. PROVENTIL HFA [Concomitant]
     Active Substance: ALBUTEROL SULFATE
  5. CLOBETASON OINT [Concomitant]
  6. PANTOPRAZOLE [Concomitant]
     Active Substance: PANTOPRAZOLE
  7. ALPRAZALAM [Concomitant]
  8. ALPRAZOLAM. [Concomitant]
     Active Substance: ALPRAZOLAM
  9. ESCITALOPRAM [Concomitant]
     Active Substance: ESCITALOPRAM OXALATE
  10. ONDANSETRON [Concomitant]
     Active Substance: ONDANSETRON

REACTIONS (3)
  - Nasopharyngitis [None]
  - Adverse drug reaction [None]
  - Gastric ulcer [None]

NARRATIVE: CASE EVENT DATE: 20190502
